FAERS Safety Report 7495584-3 (Version None)
Quarter: 2011Q2

REPORT INFORMATION
  Report Type: 
  Country: None (occurrence: None)
  Receive Date: 20110523
  Receipt Date: 20110511
  Transmission Date: 20111010
  Serious: Yes (Hospitalization)
  Sender: FDA-Public Use
  Company Number: JP-JNJFOC-20110404321

PATIENT
  Age: 59 Year
  Sex: Female

DRUGS (7)
  1. DIAZEPAM [Concomitant]
  2. FENTANYL [Suspect]
     Route: 062
     Dates: start: 20100401
  3. DANTRIUM [Concomitant]
  4. EVISTA [Concomitant]
     Route: 048
  5. SILECE [Concomitant]
  6. FENTANYL [Suspect]
     Indication: PAIN
     Route: 062
     Dates: start: 20100609
  7. METHYCOBAL [Concomitant]

REACTIONS (2)
  - HOSPITALISATION [None]
  - HYPERHIDROSIS [None]
